FAERS Safety Report 17414281 (Version 1)
Quarter: 2020Q1

REPORT INFORMATION
  Report Type: Spontaneous
  Country: SE (occurrence: SE)
  Receive Date: 20200213
  Receipt Date: 20200213
  Transmission Date: 20200409
  Serious: Yes (Hospitalization)
  Sender: FDA-Public Use
  Company Number: NVSC2020SE036104

PATIENT
  Age: 17 Year
  Sex: Female

DRUGS (5)
  1. MELATONIN [Suspect]
     Active Substance: MELATONIN
     Indication: PRODUCT USED FOR UNKNOWN INDICATION
     Dosage: OKLART HUR MANGA, BURK MED 100, HALFTEN AR KVAR (3 MG)
     Route: 048
     Dates: start: 20190622, end: 20190622
  2. FLUOXETINE [Suspect]
     Active Substance: FLUOXETINE HYDROCHLORIDE
     Indication: PRODUCT USED FOR UNKNOWN INDICATION
     Dosage: MAX 10 ST X 20 MG OKLART OM OVERDOSERAT
     Route: 048
     Dates: start: 20190622, end: 20190622
  3. OXAZEPAM. [Suspect]
     Active Substance: OXAZEPAM
     Indication: PRODUCT USED FOR UNKNOWN INDICATION
     Dosage: UPP TILL 20 ST, OKAND STYRKA
     Route: 048
     Dates: start: 20190622, end: 20190622
  4. LERGIGAN (PROMETHAZINE HYDROCHLORIDE) [Suspect]
     Active Substance: PROMETHAZINE HYDROCHLORIDE
     Indication: PRODUCT USED FOR UNKNOWN INDICATION
     Dosage: UPP TILL 18 ST X25 MG
     Route: 048
     Dates: start: 20190622, end: 20190622
  5. IMOVANE [Suspect]
     Active Substance: ZOPICLONE
     Indication: PRODUCT USED FOR UNKNOWN INDICATION
     Dosage: KANSKE 10 ST UPP TILL 20 ST
     Route: 048
     Dates: start: 20190622, end: 20190622

REACTIONS (3)
  - Depressed level of consciousness [Unknown]
  - Intentional self-injury [Unknown]
  - Intentional overdose [Unknown]

NARRATIVE: CASE EVENT DATE: 20190622
